FAERS Safety Report 13443306 (Version 8)
Quarter: 2018Q2

REPORT INFORMATION
  Report Type: Spontaneous
  Country: CA (occurrence: CA)
  Receive Date: 20170414
  Receipt Date: 20180418
  Transmission Date: 20180711
  Serious: Yes (Hospitalization, Other)
  Sender: FDA-Public Use
  Company Number: CA-GLAXOSMITHKLINE-CA2017GSK050837

PATIENT
  Age: 55 Year
  Sex: Female

DRUGS (2)
  1. BENLYSTA [Suspect]
     Active Substance: BELIMUMAB
     Indication: SYSTEMIC LUPUS ERYTHEMATOSUS
     Dosage: 1000 MG, UNK
     Route: 042
  2. BENLYSTA [Suspect]
     Active Substance: BELIMUMAB
     Dosage: 1000 MG, UNK

REACTIONS (15)
  - Systemic lupus erythematosus [Unknown]
  - Infection [Not Recovered/Not Resolved]
  - Arthralgia [Unknown]
  - Osteomyelitis [Unknown]
  - Dizziness [Unknown]
  - Muscular weakness [Unknown]
  - Balance disorder [Unknown]
  - Upper limb fracture [Not Recovered/Not Resolved]
  - Staphylococcal infection [Unknown]
  - Impaired healing [Not Recovered/Not Resolved]
  - Fall [Unknown]
  - Foot fracture [Unknown]
  - Swelling [Unknown]
  - Pain in extremity [Unknown]
  - Hospitalisation [Not Recovered/Not Resolved]

NARRATIVE: CASE EVENT DATE: 201703
